FAERS Safety Report 14578507 (Version 1)
Quarter: 2018Q1

REPORT INFORMATION
  Report Type: Spontaneous
  Country: BR (occurrence: BR)
  Receive Date: 20180227
  Receipt Date: 20180227
  Transmission Date: 20180509
  Serious: Yes (Hospitalization)
  Sender: FDA-Public Use
  Company Number: BR-SA-2018SA051237

PATIENT
  Sex: Male
  Weight: 3.5 kg

DRUGS (6)
  1. PURAN [Suspect]
     Active Substance: LEVOTHYROXINE SODIUM
     Indication: EXPOSURE VIA BREAST MILK
     Dosage: ROUTE: TRANSPLACENTAL AND TRANSMAMMARY
     Dates: start: 201609
  2. PURAN [Suspect]
     Active Substance: LEVOTHYROXINE SODIUM
     Indication: MATERNAL EXPOSURE DURING PREGNANCY
     Dosage: ROUTE: TRANSPLACENTAL AND TRANSMAMMARY
     Dates: start: 201609
  3. SOLOSTAR [Suspect]
     Active Substance: DEVICE
     Indication: EXPOSURE VIA BREAST MILK
     Dates: start: 201612
  4. LANTUS SOLOSTAR [Suspect]
     Active Substance: INSULIN GLARGINE
     Indication: EXPOSURE VIA BREAST MILK
     Dosage: ROUTE: TRANSPLACENTAL AND TRANSMAMMARY
     Dates: start: 201612
  5. SOLOSTAR [Suspect]
     Active Substance: DEVICE
     Indication: MATERNAL EXPOSURE TIMING UNSPECIFIED
     Dates: start: 201612
  6. LANTUS SOLOSTAR [Suspect]
     Active Substance: INSULIN GLARGINE
     Indication: MATERNAL EXPOSURE TIMING UNSPECIFIED
     Dosage: ROUTE: TRANSPLACENTAL AND TRANSMAMMARY
     Dates: start: 201612

REACTIONS (2)
  - Exposure via breast milk [Unknown]
  - Immature respiratory system [Unknown]
